FAERS Safety Report 5767665-3 (Version None)
Quarter: 2008Q2

REPORT INFORMATION
  Report Type: 
  Country: None (occurrence: None)
  Receive Date: 20080609
  Receipt Date: 20080527
  Transmission Date: 20081010
  Serious: Yes (Death)
  Sender: FDA-Public Use
  Company Number: 2008AL006013

PATIENT
  Age: 55 Year
  Sex: Male
  Weight: 77.1115 kg

DRUGS (13)
  1. DIGOXIN [Suspect]
     Indication: ATRIAL FIBRILLATION
     Dosage: 0.25MG DAILY PO
     Route: 048
     Dates: end: 20080402
  2. FUROSEMIDE [Concomitant]
  3. VALSARTAN [Concomitant]
  4. CLOPIDOGREL [Concomitant]
  5. SPIRONOLACTONE [Concomitant]
  6. POTASSIUM CHLORIDE [Concomitant]
  7. LIPITOR [Concomitant]
  8. ISOSORBIDE DINITRATE [Concomitant]
  9. WARFARIN SODIUM [Concomitant]
  10. AMIODARONE HCL [Concomitant]
  11. COREG [Concomitant]
  12. STARLIX [Concomitant]
  13. VITAMIN B6 [Concomitant]

REACTIONS (8)
  - ASTHENIA [None]
  - CARDIAC ARREST [None]
  - CARDIOACTIVE DRUG LEVEL INCREASED [None]
  - CARDIOMYOPATHY [None]
  - DIARRHOEA [None]
  - ISCHAEMIA [None]
  - NAUSEA [None]
  - VOMITING [None]
